FAERS Safety Report 21951163 (Version 1)
Quarter: 2023Q1

REPORT INFORMATION
  Report Type: Spontaneous
  Country: US (occurrence: US)
  Receive Date: 20230203
  Receipt Date: 20230203
  Transmission Date: 20230418
  Serious: No
  Sender: FDA-Public Use
  Company Number: US-Prasco Laboratories-PRAS20230031

PATIENT
  Age: 82 Year
  Sex: Female

DRUGS (1)
  1. ESTRADIOL [Suspect]
     Active Substance: ESTRADIOL
     Indication: Product used for unknown indication
     Dosage: A NICKLE^S WORTH
     Route: 067

REACTIONS (3)
  - Vaginal discharge [Unknown]
  - Inappropriate schedule of product administration [Unknown]
  - Off label use [Unknown]
